FAERS Safety Report 8962556 (Version 1)
Quarter: 2012Q4

REPORT INFORMATION
  Report Type: Spontaneous
  Country: US (occurrence: None)
  Receive Date: 20121211
  Receipt Date: 20121211
  Transmission Date: 20130627
  Serious: Yes (Other)
  Sender: FDA-Public Use
  Company Number: None

PATIENT
  Age: 70 Year
  Sex: Female
  Weight: 74.84 kg

DRUGS (1)
  1. DEXPAK [Suspect]
     Indication: SHOULDER PAIN
     Dates: start: 20120926, end: 20121001

REACTIONS (19)
  - Palpitations [None]
  - Palpitations [None]
  - Fatigue [None]
  - Activities of daily living impaired [None]
  - Hunger [None]
  - Cough [None]
  - Oropharyngeal pain [None]
  - Feeling hot [None]
  - Mass [None]
  - Swelling [None]
  - Torticollis [None]
  - Vitreous floaters [None]
  - Dizziness [None]
  - Swelling face [None]
  - Sensory disturbance [None]
  - Sensation of pressure [None]
  - Neoplasm [None]
  - Cyst [None]
  - Salivary gland calculus [None]
